FAERS Safety Report 25300383 (Version 2)
Quarter: 2025Q2

REPORT INFORMATION
  Report Type: Report from Study
  Country: US (occurrence: US)
  Receive Date: 20250512
  Receipt Date: 20250515
  Transmission Date: 20250717
  Serious: No
  Sender: ACADIA PHARMACEUTICALS
  Company Number: US-ACADIA PHARMACEUTICALS INC.-ACA-2025-PIM-005573

PATIENT
  Sex: Male

DRUGS (25)
  1. NUPLAZID [Suspect]
     Active Substance: PIMAVANSERIN TARTRATE
     Indication: Parkinson^s disease psychosis
     Dosage: 34 MILLIGRAM, QD
     Route: 048
  2. AMANTADINE [Concomitant]
     Active Substance: AMANTADINE
  3. AMANTADINE [Concomitant]
     Active Substance: AMANTADINE
  4. AMLODIPINE [Concomitant]
     Active Substance: AMLODIPINE BESYLATE
  5. AZELASTINE [Concomitant]
     Active Substance: AZELASTINE
  6. CALCIUM PLUS D3 [Concomitant]
  7. CLONAZEPAM [Concomitant]
     Active Substance: CLONAZEPAM
  8. CLOPIDOGREL [Concomitant]
     Active Substance: CLOPIDOGREL BISULFATE
  9. CREXONT [Concomitant]
     Active Substance: CARBIDOPA\LEVODOPA
  10. DULOXETINE [Concomitant]
     Active Substance: DULOXETINE
  11. LOSARTAN POTASSIUM [Concomitant]
     Active Substance: LOSARTAN POTASSIUM
  12. MELATONIN [Concomitant]
     Active Substance: MELATONIN
  13. MIDODRINE [Concomitant]
     Active Substance: MIDODRINE
  14. NEBIVOLOL [Concomitant]
     Active Substance: NEBIVOLOL
  15. PROLIA [Concomitant]
     Active Substance: DENOSUMAB
  16. ROSUVASTATIN [Concomitant]
     Active Substance: ROSUVASTATIN
  17. RYTARY [Concomitant]
     Active Substance: CARBIDOPA\LEVODOPA
  18. TADALAFIL [Concomitant]
     Active Substance: TADALAFIL
  19. TELMISARTAN [Concomitant]
     Active Substance: TELMISARTAN
  20. TEMAZEPAM [Concomitant]
     Active Substance: TEMAZEPAM
  21. TESTOSTERONE [Concomitant]
     Active Substance: TESTOSTERONE
  22. TRAMADOL HCL [Concomitant]
     Active Substance: TRAMADOL HYDROCHLORIDE
  23. VITAMIN B12 [Concomitant]
     Active Substance: CYANOCOBALAMIN
  24. VITAMIN D3 [Concomitant]
     Active Substance: CHOLECALCIFEROL
  25. DULOXETINE [Concomitant]
     Active Substance: DULOXETINE

REACTIONS (2)
  - Drug intolerance [Recovered/Resolved]
  - Condition aggravated [Recovered/Resolved]
